FAERS Safety Report 16171038 (Version 1)
Quarter: 2019Q2

REPORT INFORMATION
  Report Type: Spontaneous
  Country: CM (occurrence: CM)
  Receive Date: 20190408
  Receipt Date: 20190408
  Transmission Date: 20190711
  Serious: Yes (Hospitalization)
  Sender: FDA-Public Use
  Company Number: CM-FERA PHARMACEUTICALS, LLC-2019PRG00180

PATIENT
  Age: 62 Year
  Sex: Female

DRUGS (3)
  1. CLOXACILLIN [Concomitant]
     Active Substance: CLOXACILLIN
     Route: 065
  2. CORTICOSTEROIDS [Concomitant]
     Active Substance: CORTICOSTEROID NOS
     Route: 065
  3. DEXAMETHASONE. [Suspect]
     Active Substance: DEXAMETHASONE
     Indication: ARTHRALGIA
     Route: 065

REACTIONS (2)
  - Incorrect route of product administration [Recovered/Resolved]
  - Embolia cutis medicamentosa [Recovered/Resolved]
